FAERS Safety Report 24933626 (Version 1)
Quarter: 2025Q1

REPORT INFORMATION
  Report Type: Spontaneous
  Country: IT (occurrence: IT)
  Receive Date: 20250206
  Receipt Date: 20250206
  Transmission Date: 20250409
  Serious: Yes (Hospitalization)
  Sender: EXELIXIS
  Company Number: None

PATIENT
  Age: 54 Year
  Sex: Male

DRUGS (9)
  1. CABOMETYX [Suspect]
     Active Substance: CABOZANTINIB S-MALATE
     Indication: Clear cell renal cell carcinoma
     Dosage: 40 MG, QD
     Route: 048
     Dates: start: 202312, end: 20231218
  2. OPDIVO [Concomitant]
     Active Substance: NIVOLUMAB
  3. ENTECAVIR [Concomitant]
     Active Substance: ENTECAVIR
  4. CALCIO CARBONATO [Concomitant]
  5. XARELTO [Concomitant]
     Active Substance: RIVAROXABAN
  6. LASIX [Concomitant]
     Active Substance: FUROSEMIDE
  7. Aircort [Concomitant]
  8. LEVOTHYROXINE SODIUM [Concomitant]
     Active Substance: LEVOTHYROXINE SODIUM
  9. ACETAMINOPHEN\CODEINE PHOSPHATE [Concomitant]
     Active Substance: ACETAMINOPHEN\CODEINE PHOSPHATE

REACTIONS (1)
  - Rash [Recovering/Resolving]

NARRATIVE: CASE EVENT DATE: 20231218
